FAERS Safety Report 6253575-4 (Version None)
Quarter: 2009Q2

REPORT INFORMATION
  Report Type: 
  Country: None (occurrence: None)
  Receive Date: 20090630
  Receipt Date: 20090624
  Transmission Date: 20091009
  Serious: Yes (Other)
  Sender: FDA-Public Use
  Company Number: SPV1-2009-01323

PATIENT
  Sex: Female
  Weight: 90.7 kg

DRUGS (8)
  1. FOSRENOL [Suspect]
     Indication: RENAL FAILURE CHRONIC
     Dosage: 500 MG, 3X/DAY:TID, ORAL
     Route: 048
     Dates: start: 20060101
  2. SODIUM BICARBONATE IN PLASTIC CONTAINER [Concomitant]
  3. ISOSORBIDE MONONITRATE [Concomitant]
  4. PLAVIX [Concomitant]
  5. HECTOROL [Concomitant]
  6. LANTUS [Concomitant]
  7. PATANOL [Concomitant]
  8. FURSEMIDE (FUROSEMIDE) [Concomitant]

REACTIONS (9)
  - ABDOMINAL PAIN UPPER [None]
  - ARTHRALGIA [None]
  - BACK PAIN [None]
  - BLOOD CHOLESTEROL INCREASED [None]
  - HEPATITIS C [None]
  - HYPERSENSITIVITY [None]
  - MYALGIA [None]
  - NASAL CONGESTION [None]
  - PAIN IN EXTREMITY [None]
